FAERS Safety Report 21136815 (Version 2)
Quarter: 2022Q3

REPORT INFORMATION
  Report Type: Other
  Country: US (occurrence: None)
  Receive Date: 20220727
  Receipt Date: 20220905
  Transmission Date: 20221027
  Serious: Yes (Hospitalization)
  Sender: FDA-Public Use
  Company Number: US-ROCHE-3146998

PATIENT
  Sex: Male

DRUGS (2)
  1. XELODA [Suspect]
     Active Substance: CAPECITABINE
     Indication: Squamous cell carcinoma of skin
     Dosage: TAKE 2 TABLETS (300MG) BY MOUTH IN THE EVENING WITH FOOD ON DAYS 1-14 OF A 21 DAY CYCLE. TOTAL DAILY
     Route: 048
  2. XELODA [Suspect]
     Active Substance: CAPECITABINE
     Dosage: TAKE 2 TABLETS (1000MG) BY MOUTH IN THE MORNING WITH FOOD ON DAYS 1-14 OF A 21 DAY CYCLE. TOTAL DAIL
     Route: 048

REACTIONS (2)
  - Appendicitis perforated [Unknown]
  - Off label use [Unknown]
